FAERS Safety Report 18588927 (Version 10)
Quarter: 2021Q4

REPORT INFORMATION
  Report Type: Spontaneous
  Country: US (occurrence: US)
  Receive Date: 20201208
  Receipt Date: 20211223
  Transmission Date: 20220303
  Serious: Yes (Other)
  Sender: FDA-Public Use
  Company Number: US-GLAXOSMITHKLINE-US2020AMR238658

PATIENT
  Sex: Female

DRUGS (7)
  1. ZEJULA [Suspect]
     Active Substance: NIRAPARIB
     Indication: Ovarian cancer
     Dosage: 100 MG, QD
     Dates: start: 20201030
  2. ZEJULA [Suspect]
     Active Substance: NIRAPARIB
     Dosage: 100 MG, QD
  3. ZEJULA [Suspect]
     Active Substance: NIRAPARIB
     Dosage: 100 MG, QD
  4. ZEJULA [Suspect]
     Active Substance: NIRAPARIB
     Dosage: UNK
     Dates: start: 20210314
  5. ZEJULA [Suspect]
     Active Substance: NIRAPARIB
     Dosage: 100 MG, QD
     Dates: start: 20201116
  6. ZEJULA [Suspect]
     Active Substance: NIRAPARIB
     Dosage: 100 MG, QD
  7. MODERNA COVID-19 VACCINE [Suspect]
     Active Substance: ELASOMERAN
     Indication: COVID-19 prophylaxis
     Dosage: UNK

REACTIONS (27)
  - Neuropathy peripheral [Unknown]
  - Insomnia [Unknown]
  - Blood pressure increased [Unknown]
  - Adverse drug reaction [Unknown]
  - Nail discolouration [Not Recovered/Not Resolved]
  - Upper-airway cough syndrome [Unknown]
  - Cough [Unknown]
  - Headache [Unknown]
  - Laboratory test abnormal [Unknown]
  - Appetite disorder [Unknown]
  - Constipation [Unknown]
  - Diarrhoea [Unknown]
  - Abdominal pain upper [Unknown]
  - Decreased appetite [Not Recovered/Not Resolved]
  - Nasal dryness [Not Recovered/Not Resolved]
  - Illness [Not Recovered/Not Resolved]
  - Sinusitis [Unknown]
  - Fungal infection [Unknown]
  - Oropharyngeal pain [Unknown]
  - Pain [Not Recovered/Not Resolved]
  - Tremor [Unknown]
  - Skin discolouration [Not Recovered/Not Resolved]
  - White blood cell count abnormal [Unknown]
  - Malaise [Unknown]
  - Dry skin [Unknown]
  - Pruritus [Unknown]
  - Product dose omission issue [Unknown]
